FAERS Safety Report 9417200 (Version 2)
Quarter: 2013Q3

REPORT INFORMATION
  Report Type: Spontaneous
  Country: GB (occurrence: None)
  Receive Date: 20130722
  Receipt Date: 20130808
  Transmission Date: 20140515
  Serious: Yes (Hospitalization)
  Sender: FDA-Public Use
  Company Number: AMAG201300112

PATIENT
  Age: 66 Year
  Sex: Male

DRUGS (2)
  1. RIENSO [Suspect]
     Indication: IMAGING PROCEDURE
     Route: 042
     Dates: start: 20130625, end: 20130625
  2. BUSCOPAN (HYOSCINE BUTYLBROMIDE) [Concomitant]

REACTIONS (5)
  - Myocardial ischaemia [None]
  - Coronary artery occlusion [None]
  - Coronary artery disease [None]
  - Aortic valve disease [None]
  - Surgical failure [None]
